FAERS Safety Report 21957320 (Version 1)
Quarter: 2023Q1

REPORT INFORMATION
  Report Type: Spontaneous
  Country: CA (occurrence: CA)
  Receive Date: 20230206
  Receipt Date: 20230206
  Transmission Date: 20230418
  Serious: Yes (Other)
  Sender: FDA-Public Use
  Company Number: None

PATIENT
  Age: 62 Year
  Sex: Female

DRUGS (20)
  1. METHOTREXATE [Suspect]
     Active Substance: METHOTREXATE
     Indication: Product used for unknown indication
     Route: 065
  2. CELEBREX [Suspect]
     Active Substance: CELECOXIB
     Indication: Product used for unknown indication
     Dosage: 2 EVERY 1 DAYS
     Route: 065
  3. CLONAZEPAM [Concomitant]
     Active Substance: CLONAZEPAM
  4. CYANOCOBALAMIN [Concomitant]
     Active Substance: CYANOCOBALAMIN
  5. DETROL [Concomitant]
     Active Substance: TOLTERODINE TARTRATE
  6. ESCITALOPRAM OXALATE [Concomitant]
     Active Substance: ESCITALOPRAM OXALATE
  7. ESOMEPRAZOLE SODIUM [Concomitant]
     Active Substance: ESOMEPRAZOLE SODIUM
  8. FOLIC ACID [Concomitant]
     Active Substance: FOLIC ACID
  9. EMPAGLIFLOZIN [Concomitant]
     Active Substance: EMPAGLIFLOZIN
  10. LANTUS [Concomitant]
     Active Substance: INSULIN GLARGINE
     Route: 058
  11. MIRABEGRON [Concomitant]
     Active Substance: MIRABEGRON
     Dosage: EXTENDED- RELEASE
  12. NOVORAPID [Concomitant]
     Active Substance: INSULIN ASPART
     Route: 058
  13. ONDANSETRON [Concomitant]
     Active Substance: ONDANSETRON
  14. PREDNISONE [Concomitant]
     Active Substance: PREDNISONE
  15. PROGESTERONE [Concomitant]
     Active Substance: PROGESTERONE
  16. SYNTHROID [Concomitant]
     Active Substance: LEVOTHYROXINE SODIUM
  17. TOPIRAMATE [Concomitant]
     Active Substance: TOPIRAMATE
  18. TYLENOL [Concomitant]
     Active Substance: ACETAMINOPHEN
  19. VITAMIN D [Concomitant]
     Active Substance: VITAMIN D NOS
  20. ZOPICLONE [Concomitant]
     Active Substance: ZOPICLONE

REACTIONS (2)
  - Crying [Not Recovered/Not Resolved]
  - Pain in extremity [Not Recovered/Not Resolved]
